FAERS Safety Report 18695916 (Version 2)
Quarter: 2021Q1

REPORT INFORMATION
  Report Type: Spontaneous
  Country: US (occurrence: US)
  Receive Date: 20210104
  Receipt Date: 20210118
  Transmission Date: 20210419
  Serious: Yes (Other)
  Sender: FDA-Public Use
  Company Number: US-AMNEAL PHARMACEUTICALS-2020-AMRX-04028

PATIENT
  Age: 40 Year
  Sex: Female

DRUGS (6)
  1. KEPPRA [Concomitant]
     Active Substance: LEVETIRACETAM
     Indication: EPILEPSY
     Dosage: 750 MILLIGRAM, 2 /DAY
     Route: 048
  2. KEPPRA [Concomitant]
     Active Substance: LEVETIRACETAM
     Indication: PARTIAL SEIZURES
  3. GABAPENTIN. [Concomitant]
     Active Substance: GABAPENTIN
     Indication: SLEEP DISORDER
     Dosage: 1200 MILLIGRAM AT NIGHT
     Route: 048
  4. DILANTIN SODIUM [Suspect]
     Active Substance: PHENYTOIN SODIUM
     Indication: PARTIAL SEIZURES
     Dosage: 3 CAPSULES, 2 /DAY
     Dates: start: 2008
  5. DILANTIN SODIUM [Suspect]
     Active Substance: PHENYTOIN SODIUM
     Indication: EPILEPSY
  6. PHENYTOIN SODIUM. [Suspect]
     Active Substance: PHENYTOIN SODIUM
     Indication: PARTIAL SEIZURES
     Dosage: 3 CAPSULES, 2 /DAY
     Route: 048
     Dates: start: 202012

REACTIONS (3)
  - Urinary incontinence [Unknown]
  - Prescription drug used without a prescription [Unknown]
  - Condition aggravated [Not Recovered/Not Resolved]

NARRATIVE: CASE EVENT DATE: 202012
